FAERS Safety Report 5489979-7 (Version None)
Quarter: 2007Q4

REPORT INFORMATION
  Report Type: 
  Country: None (occurrence: None)
  Receive Date: 20071018
  Receipt Date: 20071010
  Transmission Date: 20080405
  Serious: Yes (Hospitalization, Disabling, Other)
  Sender: FDA-Public Use
  Company Number: GB-ABBOTT-02P-167-0115279-00

PATIENT
  Age: 62 Year
  Sex: Female

DRUGS (2)
  1. CLARITHROMYCIN [Suspect]
     Indication: LOWER RESPIRATORY TRACT INFECTION
     Route: 048
  2. WARFARIN [Suspect]
     Indication: ANTICOAGULANT THERAPY
     Dosage: NOT REPORTED

REACTIONS (7)
  - CHOROIDAL HAEMORRHAGE [None]
  - DRUG INTERACTION [None]
  - EYE HAEMORRHAGE [None]
  - HYPHAEMA [None]
  - INTERNATIONAL NORMALISED RATIO INCREASED [None]
  - PYREXIA [None]
  - VISUAL ACUITY REDUCED [None]
